FAERS Safety Report 15800503 (Version 4)
Quarter: 2019Q3

REPORT INFORMATION
  Report Type: Report from Study
  Country: CO (occurrence: CO)
  Receive Date: 20190108
  Receipt Date: 20190806
  Transmission Date: 20191004
  Serious: Yes (Hospitalization, Other)
  Sender: FDA-Public Use
  Company Number: CO-BRISTOL-MYERS SQUIBB COMPANY-BMS-2019-000625

PATIENT
  Age: 62 Year
  Sex: Female

DRUGS (1)
  1. NIVOLUMAB [Suspect]
     Active Substance: NIVOLUMAB
     Indication: LUNG NEOPLASM MALIGNANT
     Dosage: 200 MILLIGRAM, Q2WK
     Route: 042
     Dates: start: 20170901

REACTIONS (7)
  - Weight increased [Recovered/Resolved]
  - Metastasis [Recovering/Resolving]
  - Vomiting [Recovered/Resolved]
  - Burning sensation [Recovering/Resolving]
  - Seizure [Unknown]
  - Diarrhoea [Recovered/Resolved]
  - Skin discolouration [Unknown]

NARRATIVE: CASE EVENT DATE: 20181218
